FAERS Safety Report 10137250 (Version 1)
Quarter: 2014Q2

REPORT INFORMATION
  Report Type: Report from Study
  Country: US (occurrence: US)
  Receive Date: 20140429
  Receipt Date: 20140429
  Transmission Date: 20141212
  Serious: No
  Sender: FDA-Public Use
  Company Number: US-ABBVIE-14P-163-1211898-00

PATIENT
  Age: 45 Year
  Sex: Male
  Weight: 99.88 kg

DRUGS (3)
  1. ANDROGEL [Suspect]
     Indication: BLOOD TESTOSTERONE DECREASED
     Route: 061
     Dates: start: 20140225
  2. METOPROLOL [Concomitant]
     Indication: HYPERTENSION
  3. KLONOPIN [Concomitant]
     Indication: ANXIETY

REACTIONS (3)
  - Therapeutic response changed [Unknown]
  - Asthenia [Not Recovered/Not Resolved]
  - Anxiety disorder [Unknown]
